FAERS Safety Report 9177748 (Version 3)
Quarter: 2012Q4

REPORT INFORMATION
  Report Type: 
  Country: CA (occurrence: CA)
  Receive Date: 20121008
  Receipt Date: 20121023
  Transmission Date: 20130627
  Serious: Yes (Other)
  Sender: FDA-Public Use
  Company Number: CA-RB-045044-12

PATIENT
  Age: 58 Year
  Sex: Female

DRUGS (2)
  1. CEPACOL MAXIMUM NUMBING LOZENGES HONEY LEMON (MENTHOL) [Suspect]
     Indication: OROPHARYNGEAL PAIN
     Route: 048
     Dates: start: 20120924
  2. CEPACOL MAXIMUM NUMBING LOZENGES HONEY LEMON (MENTHOL) [Suspect]

REACTIONS (3)
  - Swollen tongue [Recovered/Resolved]
  - Throat tightness [Recovered/Resolved]
  - Feeling abnormal [Recovered/Resolved]
